FAERS Safety Report 6500656-3 (Version None)
Quarter: 2009Q4

REPORT INFORMATION
  Report Type: 
  Country: None (occurrence: None)
  Receive Date: 20091216
  Receipt Date: 20081220
  Transmission Date: 20100525
  Serious: No
  Sender: FDA-Public Use
  Company Number: A0761597A

PATIENT
  Age: 61 Year

DRUGS (1)
  1. NICOTINE POLACRILEX [Suspect]
     Indication: SMOKING CESSATION THERAPY
     Dates: start: 20081210, end: 20081213

REACTIONS (2)
  - APHTHOUS STOMATITIS [None]
  - MOUTH ULCERATION [None]
